FAERS Safety Report 6670341-6 (Version None)
Quarter: 2010Q2

REPORT INFORMATION
  Report Type: 
  Country: None (occurrence: None)
  Receive Date: 20100405
  Receipt Date: 20100322
  Transmission Date: 20101027
  Serious: Yes (Other)
  Sender: FDA-Public Use
  Company Number: TUK2010A00038

PATIENT
  Sex: Male

DRUGS (6)
  1. ACTOS [Suspect]
     Indication: TYPE 2 DIABETES MELLITUS
     Dosage: 15 MG (15 MG)
     Dates: start: 20100317
  2. IRBESARTAN [Concomitant]
  3. SITAGLIPTIN [Concomitant]
  4. GLUCOPHAGE [Concomitant]
  5. LIPITOR [Concomitant]
  6. ASPIRIN [Concomitant]

REACTIONS (11)
  - ARTHRALGIA [None]
  - DEAFNESS [None]
  - DIZZINESS [None]
  - DYSPNOEA [None]
  - EYE SWELLING [None]
  - HEADACHE [None]
  - HYPOAESTHESIA [None]
  - RENAL PAIN [None]
  - TINNITUS [None]
  - VERTIGO [None]
  - VISION BLURRED [None]
